FAERS Safety Report 9531459 (Version 1)
Quarter: 2013Q3

REPORT INFORMATION
  Report Type: Spontaneous
  Country: US (occurrence: None)
  Receive Date: 20130916
  Receipt Date: 20130916
  Transmission Date: 20140515
  Serious: No
  Sender: FDA-Public Use
  Company Number: None

PATIENT
  Age: 65 Year
  Sex: Female
  Weight: 61.24 kg

DRUGS (1)
  1. ZYCLARA 3.75 CRE7.5 MEDISES [Suspect]
     Indication: ACTINIC KERATOSIS
     Dosage: 1 PACKET OR LESS, TWICE DAILY, APPLIED TO A SURFACE USUALLY THE SKIN
     Dates: start: 20130626, end: 20130707

REACTIONS (13)
  - Blister [None]
  - Wound secretion [None]
  - Scab [None]
  - Haemorrhage [None]
  - Pruritus [None]
  - Erythema [None]
  - Acne [None]
  - Eye oedema [None]
  - Nasal congestion [None]
  - Fatigue [None]
  - Pain [None]
  - Ear infection [None]
  - Immunosuppression [None]
